FAERS Safety Report 11244330 (Version 1)
Quarter: 2015Q3

REPORT INFORMATION
  Report Type: Spontaneous
  Country: US (occurrence: None)
  Receive Date: 20150706
  Receipt Date: 20150706
  Transmission Date: 20151125
  Serious: Yes (Other)
  Sender: FDA-Public Use
  Company Number: None

PATIENT
  Age: 76 Year
  Sex: Female
  Weight: 49.9 kg

DRUGS (2)
  1. LORAZEPAM. [Concomitant]
     Active Substance: LORAZEPAM
  2. PAROXETINE [Suspect]
     Active Substance: PAROXETINE\PAROXETINE HYDROCHLORIDE
     Indication: ANXIETY
     Dosage: 1/2, QD, ORAL
     Route: 048
     Dates: start: 20150701, end: 20150701

REACTIONS (9)
  - Dizziness [None]
  - Hypertension [None]
  - Anxiety [None]
  - Hyperhidrosis [None]
  - Headache [None]
  - Dyspnoea [None]
  - Palpitations [None]
  - Muscle spasms [None]
  - Erythema [None]

NARRATIVE: CASE EVENT DATE: 20150701
